FAERS Safety Report 7845158-7 (Version None)
Quarter: 2011Q4

REPORT INFORMATION
  Report Type: 
  Country: None (occurrence: None)
  Receive Date: 20111025
  Receipt Date: 20111020
  Transmission Date: 20120403
  Serious: Yes (Hospitalization)
  Sender: FDA-Public Use
  Company Number: CHPA2011US14557

PATIENT
  Age: 92 Year
  Sex: Female

DRUGS (4)
  1. CONTROL PLP [Suspect]
     Dosage: 7 MG, QD
     Route: 062
     Dates: start: 20111015, end: 20111017
  2. DRUG THERAPY NOS [Concomitant]
     Indication: CHRONIC OBSTRUCTIVE PULMONARY DISEASE
  3. CONTROL PLP [Suspect]
     Indication: SMOKING CESSATION THERAPY
     Dosage: 7 MG, QD
     Route: 062
     Dates: start: 20111019, end: 20111020
  4. CONTROL PLP [Suspect]
     Dosage: 7 MG, QD
     Route: 062
     Dates: start: 20110927

REACTIONS (8)
  - FORMICATION [None]
  - PRURITUS [None]
  - ASTHENIA [None]
  - INAPPROPRIATE SCHEDULE OF DRUG ADMINISTRATION [None]
  - DIZZINESS [None]
  - UNDERDOSE [None]
  - CHRONIC OBSTRUCTIVE PULMONARY DISEASE [None]
  - CONCOMITANT DISEASE AGGRAVATED [None]
